FAERS Safety Report 26197111 (Version 1)
Quarter: 2025Q4

REPORT INFORMATION
  Report Type: Spontaneous
  Country: CN (occurrence: CN)
  Receive Date: 20251224
  Receipt Date: 20251224
  Transmission Date: 20260118
  Serious: Yes (Life-Threatening)
  Sender: PURDUE
  Company Number: CN-NAPPMUNDI-GBR-2025-0131573

PATIENT
  Age: 81 Year
  Sex: Male
  Weight: 80 kg

DRUGS (3)
  1. OXYCODONE HYDROCHLORIDE [Suspect]
     Active Substance: OXYCODONE HYDROCHLORIDE
     Indication: Tumour pain
     Dosage: 120 MILLIGRAM
     Route: 065
     Dates: end: 20251202
  2. OXYCODONE HYDROCHLORIDE [Suspect]
     Active Substance: OXYCODONE HYDROCHLORIDE
     Dosage: 160 MILLIGRAM, BID
     Route: 048
     Dates: start: 20251203, end: 20251203
  3. MORPHINE [Suspect]
     Active Substance: MORPHINE
     Indication: Analgesic therapy
     Dosage: UNK
     Route: 065
     Dates: start: 20251203, end: 20251203

REACTIONS (1)
  - Hyperpyrexia [Unknown]

NARRATIVE: CASE EVENT DATE: 20251203
